FAERS Safety Report 17524339 (Version 1)
Quarter: 2020Q1

REPORT INFORMATION
  Report Type: Spontaneous
  Country: RU (occurrence: RU)
  Receive Date: 20200311
  Receipt Date: 20200311
  Transmission Date: 20200409
  Serious: Yes (Other)
  Sender: FDA-Public Use
  Company Number: RU-ROCHE-2563379

PATIENT
  Age: 48 Year
  Sex: Female

DRUGS (10)
  1. GAZYVA [Suspect]
     Active Substance: OBINUTUZUMAB
     Indication: EXTRANODAL MARGINAL ZONE B-CELL LYMPHOMA (MALT TYPE)
     Dosage: DAY 1
     Route: 042
     Dates: start: 20190320, end: 20190321
  2. GAZYVA [Suspect]
     Active Substance: OBINUTUZUMAB
     Dosage: DAY 1
     Route: 042
     Dates: start: 20190618, end: 20190619
  3. GAZYVA [Suspect]
     Active Substance: OBINUTUZUMAB
     Dosage: DAY 1
     Route: 042
     Dates: start: 20190718, end: 20190719
  4. BENDAMUSTINE [Suspect]
     Active Substance: BENDAMUSTINE
     Indication: EXTRANODAL MARGINAL ZONE B-CELL LYMPHOMA (MALT TYPE)
     Dosage: 1-2 DAYS, DAILY DOSE 270 MG
     Route: 065
     Dates: start: 20190320, end: 20190321
  5. RITUXIMAB. [Suspect]
     Active Substance: RITUXIMAB
     Dosage: 6 COURSES
     Route: 065
     Dates: start: 201710, end: 201810
  6. GAZYVA [Suspect]
     Active Substance: OBINUTUZUMAB
     Dosage: DAY 1
     Route: 042
     Dates: start: 20190422, end: 20190423
  7. BENDAMUSTINE [Suspect]
     Active Substance: BENDAMUSTINE
     Dosage: DAYS 1-2, DAILY DOSE 270 MG
     Route: 065
     Dates: start: 20190422, end: 20190423
  8. BENDAMUSTINE [Suspect]
     Active Substance: BENDAMUSTINE
     Dosage: DAYS 1-2, DAILY DOSE 276 MG
     Route: 065
     Dates: start: 20190618, end: 20190619
  9. BENDAMUSTINE [Suspect]
     Active Substance: BENDAMUSTINE
     Dosage: DAYS 1-2, DAILY DOSE 276 MG
     Route: 065
     Dates: start: 20190718, end: 20190719
  10. RITUXIMAB. [Suspect]
     Active Substance: RITUXIMAB
     Indication: EXTRANODAL MARGINAL ZONE B-CELL LYMPHOMA (MALT TYPE)
     Dosage: 8 COURSES
     Route: 065
     Dates: start: 201612, end: 201705

REACTIONS (7)
  - Leukopenia [Unknown]
  - Off label use [Unknown]
  - Lymphoma [Unknown]
  - Thrombocytopenia [Unknown]
  - Neutropenia [Unknown]
  - Uterine haemorrhage [Recovered/Resolved]
  - Intentional product use issue [Unknown]

NARRATIVE: CASE EVENT DATE: 201810
